FAERS Safety Report 8450161-2 (Version None)
Quarter: 2012Q2

REPORT INFORMATION
  Report Type: 
  Country: None (occurrence: None)
  Receive Date: 20120620
  Receipt Date: 20120611
  Transmission Date: 20120825
  Serious: Yes (Hospitalization)
  Sender: FDA-Public Use
  Company Number: US-BAYER-2012-014323

PATIENT
  Age: 29 Year
  Sex: Female
  Weight: 90.703 kg

DRUGS (9)
  1. ASCORBIC ACID [Concomitant]
     Dosage: UNK UNK, QD
  2. OMEPRAZOLE [Concomitant]
     Dosage: 20 MG, UNK
  3. FLUCONAZOLE [Concomitant]
     Dosage: 150 MG, UNK
  4. NSAID'S [Concomitant]
     Dosage: PERIODICALLY
  5. AMOXICILLIN [Concomitant]
     Dosage: 500 MG, UNK
  6. YASMIN [Suspect]
     Indication: CONTRACEPTION
     Dosage: UNK
     Dates: start: 20001001, end: 20091201
  7. DROSPIRENONE AND ETHINYL ESTRADIOL [Suspect]
     Indication: CONTRACEPTION
     Dosage: UNK
     Dates: start: 20001001, end: 20091201
  8. ONDANSETRON HCL [Concomitant]
     Dosage: 4 MG, UNK
  9. CLARITHROMYCIN [Concomitant]
     Dosage: 500 MG, UNK

REACTIONS (6)
  - GALLBLADDER DISORDER [None]
  - EMOTIONAL DISTRESS [None]
  - INJURY [None]
  - PAIN [None]
  - CHOLECYSTITIS CHRONIC [None]
  - RENAL STONE REMOVAL [None]
